FAERS Safety Report 7664568-4 (Version None)
Quarter: 2011Q3

REPORT INFORMATION
  Report Type: 
  Country: None (occurrence: None)
  Receive Date: 20110806
  Receipt Date: 20110105
  Transmission Date: 20111222
  Serious: No
  Sender: FDA-Public Use
  Company Number: US-ABBOTT-11P-163-0695340-00

PATIENT
  Sex: Male

DRUGS (4)
  1. UNKNOWN HYPERTENSION MEDICATION [Concomitant]
     Indication: PRODUCT USED FOR UNKNOWN INDICATION
  2. NIASPAN [Suspect]
     Indication: BLOOD CHOLESTEROL INCREASED
     Dosage: AT BEDTIME
     Route: 048
     Dates: start: 20110101
  3. UNKNOWN MEDICATION [Concomitant]
     Indication: DRUG THERAPY
     Route: 047
  4. NYQUIL [Concomitant]
     Indication: SLEEP DISORDER THERAPY
     Dosage: NIGHTLY

REACTIONS (1)
  - FLUSHING [None]
